FAERS Safety Report 25971099 (Version 1)
Quarter: 2025Q4

REPORT INFORMATION
  Report Type: Spontaneous
  Country: US (occurrence: US)
  Receive Date: 20251028
  Receipt Date: 20251028
  Transmission Date: 20260117
  Serious: Yes (Hospitalization)
  Sender: PHARMING GROUP
  Company Number: US-PHARMING-PHAUS2025001523

PATIENT
  Sex: Female

DRUGS (1)
  1. RUCONEST [Suspect]
     Active Substance: CONESTAT ALFA
     Indication: Hereditary angioedema
     Dosage: 1500 IU, AS NEEDED
     Route: 042
     Dates: start: 202506

REACTIONS (1)
  - Pain [Unknown]
